FAERS Safety Report 23372433 (Version 1)
Quarter: 2024Q1

REPORT INFORMATION
  Report Type: Spontaneous
  Country: CA (occurrence: CA)
  Receive Date: 20240105
  Receipt Date: 20240105
  Transmission Date: 20240410
  Serious: Yes (Other)
  Sender: FDA-Public Use
  Company Number: CA-FreseniusKabi-FK202400235

PATIENT
  Age: 85 Year
  Sex: Male

DRUGS (3)
  1. MIDAZOLAM HYDROCHLORIDE [Suspect]
     Active Substance: MIDAZOLAM HYDROCHLORIDE
     Indication: Sedative therapy
     Dosage: FORM OF ADMIN.- LIQUID INTRAMUSCULAR?ROUTE OF ADMIN.- OTHER
  2. MIDAZOLAM HYDROCHLORIDE [Suspect]
     Active Substance: MIDAZOLAM HYDROCHLORIDE
     Indication: Bronchoscopy
  3. FENTANYL [Concomitant]
     Active Substance: FENTANYL\FENTANYL CITRATE
     Indication: Product used for unknown indication
     Dosage: FORM OF ADMIN.- NOT SPECIFIED

REACTIONS (4)
  - Depressed level of consciousness [Recovered/Resolved]
  - Obstructive airways disorder [Recovered/Resolved]
  - Oxygen saturation decreased [Recovered/Resolved]
  - Reversal of sedation [Recovered/Resolved]
